FAERS Safety Report 15469447 (Version 2)
Quarter: 2018Q4

REPORT INFORMATION
  Report Type: Spontaneous
  Country: JP (occurrence: JP)
  Receive Date: 20181005
  Receipt Date: 20181102
  Transmission Date: 20190205
  Serious: Yes (Hospitalization)
  Sender: FDA-Public Use
  Company Number: JP-JNJFOC-20181000820

PATIENT
  Age: 71 Year
  Sex: Male
  Weight: 56.6 kg

DRUGS (1)
  1. XARELTO [Suspect]
     Active Substance: RIVAROXABAN
     Indication: DEEP VEIN THROMBOSIS
     Route: 048
     Dates: start: 20180914, end: 20180928

REACTIONS (1)
  - Thrombophlebitis [Unknown]

NARRATIVE: CASE EVENT DATE: 20180928
